FAERS Safety Report 25416675 (Version 11)
Quarter: 2025Q4

REPORT INFORMATION
  Report Type: Report from Study
  Country: EU (occurrence: EU)
  Receive Date: 20250610
  Receipt Date: 20251222
  Transmission Date: 20260118
  Serious: Yes (Hospitalization)
  Sender: TAKEDA
  Company Number: EU-TAKEDA-2025TUS049191

PATIENT
  Age: 65 Year
  Sex: Female

DRUGS (17)
  1. TEDUGLUTIDE [Suspect]
     Active Substance: TEDUGLUTIDE
     Indication: Short-bowel syndrome
     Dosage: 5 MILLIGRAM, QD
     Dates: start: 20161128, end: 20170315
  2. TEDUGLUTIDE [Suspect]
     Active Substance: TEDUGLUTIDE
     Dosage: 2.5 MILLIGRAM, QD
     Dates: start: 20170316, end: 20170413
  3. TEDUGLUTIDE [Suspect]
     Active Substance: TEDUGLUTIDE
     Dosage: 4 MILLIGRAM, QD
     Dates: start: 20170414, end: 20170421
  4. TEDUGLUTIDE [Suspect]
     Active Substance: TEDUGLUTIDE
     Dosage: 2.5 MILLIGRAM, QD
     Dates: start: 20170422, end: 20170424
  5. TEDUGLUTIDE [Suspect]
     Active Substance: TEDUGLUTIDE
     Dosage: 3.1 MILLIGRAM, QD
     Dates: start: 20170425, end: 20170427
  6. TEDUGLUTIDE [Suspect]
     Active Substance: TEDUGLUTIDE
     Dosage: 2.5 MILLIGRAM, QD
     Dates: start: 20170428, end: 20170508
  7. OMEPRAZOLE [Concomitant]
     Active Substance: OMEPRAZOLE
     Indication: Short-bowel syndrome
     Dosage: 40 MILLIGRAM, QD
     Dates: start: 20180926
  8. AMLODIPINE BESYLATE [Concomitant]
     Active Substance: AMLODIPINE BESYLATE
     Indication: Hypertension
     Dosage: 5 MILLIGRAM, QD
     Dates: start: 20201021
  9. PRAMIPEXOLE [Concomitant]
     Active Substance: PRAMIPEXOLE
     Indication: Restless legs syndrome
     Dosage: 0.18 MILLIGRAM, BID
     Dates: start: 20250819
  10. RAMIPRIL [Concomitant]
     Active Substance: RAMIPRIL
     Indication: Hypertension
     Dosage: 2.5 MILLIGRAM, QD
     Dates: start: 202104
  11. LOPERAMIDE [Concomitant]
     Active Substance: LOPERAMIDE
     Indication: Short-bowel syndrome
     Dosage: 2 MILLIGRAM, QID
     Dates: start: 202210
  12. D3 VICOTRAT [Concomitant]
     Indication: Vitamin D deficiency
     Dosage: 100000 INTERNATIONAL UNIT, MONTHLY
     Dates: start: 20230404
  13. STELARA [Concomitant]
     Active Substance: USTEKINUMAB
     Indication: Crohn^s disease
     Dosage: 90 MILLIGRAM, Q3MONTHS
     Dates: start: 202307
  14. AZATHIOPRINE [Concomitant]
     Active Substance: AZATHIOPRINE
     Indication: Crohn^s disease
     Dosage: 75 MILLIGRAM, QD
     Dates: start: 20180926
  15. CIPROFLOXACIN [Concomitant]
     Active Substance: CIPROFLOXACIN
     Indication: Prophylaxis
     Dosage: 400 MILLIGRAM, BID
     Dates: start: 20250728, end: 20250731
  16. CIPROFLOXACIN [Concomitant]
     Active Substance: CIPROFLOXACIN
     Dosage: 500 MILLIGRAM, BID
     Dates: start: 20250801, end: 20250818
  17. PREDNISOLONE [Concomitant]
     Active Substance: PREDNISOLONE
     Dosage: 50 MILLIGRAM

REACTIONS (16)
  - Pseudopolyp [Recovered/Resolved]
  - Diarrhoea [Recovered/Resolved]
  - Postoperative ileus [Recovered/Resolved]
  - Splenomegaly [Recovered/Resolved]
  - Hepatic steatosis [Not Recovered/Not Resolved]
  - Ovarian cyst [Recovered/Resolved]
  - Fat redistribution [Not Recovered/Not Resolved]
  - Leukocytosis [Recovered/Resolved]
  - Anaemia [Recovered/Resolved]
  - Iron deficiency [Not Recovered/Not Resolved]
  - Night sweats [Recovered/Resolved]
  - Nocturia [Not Recovered/Not Resolved]
  - Erythema [Not Recovered/Not Resolved]
  - Nausea [Recovered/Resolved]
  - Oedema peripheral [Recovered/Resolved]
  - Urinary tract infection [Recovered/Resolved]

NARRATIVE: CASE EVENT DATE: 20250301
